FAERS Safety Report 16563867 (Version 3)
Quarter: 2020Q3

REPORT INFORMATION
  Report Type: Report from Study
  Country: GR (occurrence: GR)
  Receive Date: 20190712
  Receipt Date: 20191030
  Transmission Date: 20201104
  Serious: Yes (Death, Other)
  Sender: FDA-Public Use
  Company Number: GR-ROCHE-2352387

PATIENT
  Sex: Female

DRUGS (1)
  1. POLATUZUMAB VEDOTIN. [Suspect]
     Active Substance: POLATUZUMAB VEDOTIN
     Indication: DIFFUSE LARGE B-CELL LYMPHOMA
     Dosage: 3 CYCLES?THIRD DOSE ON 10/JUL/2019
     Route: 065
     Dates: start: 20190405

REACTIONS (9)
  - Gastric haemorrhage [Fatal]
  - Cytopenia [Unknown]
  - Diarrhoea [Not Recovered/Not Resolved]
  - Gastrointestinal haemorrhage [Fatal]
  - Toxicity to various agents [Fatal]
  - Cytopenia [Recovering/Resolving]
  - Platelet count decreased [Not Recovered/Not Resolved]
  - Haematochezia [Fatal]
  - Renal failure [Fatal]
